FAERS Safety Report 19673459 (Version 1)
Quarter: 2021Q3

REPORT INFORMATION
  Report Type: Spontaneous
  Country: US (occurrence: US)
  Receive Date: 20210806
  Receipt Date: 20210806
  Transmission Date: 20211014
  Serious: Yes (Other)
  Sender: FDA-Public Use
  Company Number: None

PATIENT
  Age: 42 Year
  Sex: Female
  Weight: 74.25 kg

DRUGS (6)
  1. AMBIEN [Concomitant]
     Active Substance: ZOLPIDEM TARTRATE
  2. THYROID [Concomitant]
     Active Substance: LEVOTHYROXINE\LIOTHYRONINE
  3. LEXAPRO [Concomitant]
     Active Substance: ESCITALOPRAM OXALATE
  4. CHANTIX [Suspect]
     Active Substance: VARENICLINE TARTRATE
     Indication: EX-TOBACCO USER
     Dosage: ?          QUANTITY:1 TABLET(S);?
     Route: 048
     Dates: start: 20200709, end: 20200901
  5. HORMONE [Concomitant]
     Active Substance: UNSPECIFIED INGREDIENT
  6. XANAX [Concomitant]
     Active Substance: ALPRAZOLAM

REACTIONS (5)
  - Illness [None]
  - Vomiting [None]
  - Nausea [None]
  - Chest pain [None]
  - Headache [None]

NARRATIVE: CASE EVENT DATE: 20200720
